FAERS Safety Report 10175900 (Version 2)
Quarter: 2014Q3

REPORT INFORMATION
  Report Type: Spontaneous
  Country: NL (occurrence: NL)
  Receive Date: 20140516
  Receipt Date: 20140819
  Transmission Date: 20150326
  Serious: Yes (Other)
  Sender: FDA-Public Use
  Company Number: PHHY2014NL056991

PATIENT
  Age: 52 Year
  Sex: Male

DRUGS (4)
  1. AFINITOR [Concomitant]
     Active Substance: EVEROLIMUS
     Dosage: UNK UKN, UNK
  2. KEPPRA [Concomitant]
     Active Substance: LEVETIRACETAM
     Indication: EPILEPSY
     Dosage: UNK UKN, UNK
  3. SANDOSTATIN LAR DEPOT [Suspect]
     Active Substance: OCTREOTIDE ACETATE
     Indication: NEUROENDOCRINE TUMOUR
     Dosage: 30 MG, UNK
     Dates: start: 20140418
  4. PROGLICEM [Concomitant]
     Active Substance: DIAZOXIDE
     Indication: BLOOD GLUCOSE ABNORMAL
     Dosage: UNK UKN, UNK

REACTIONS (5)
  - Enuresis [Recovering/Resolving]
  - Fatigue [Recovering/Resolving]
  - Hallucination [Recovering/Resolving]
  - Epilepsy [Recovering/Resolving]
  - Hyperhidrosis [Recovering/Resolving]

NARRATIVE: CASE EVENT DATE: 20140418
